FAERS Safety Report 9840019 (Version 1)
Quarter: 2013Q4

REPORT INFORMATION
  Report Type: Spontaneous
  Country: US (occurrence: None)
  Receive Date: 20131206
  Receipt Date: 20131206
  Transmission Date: 20140711
  Serious: Yes (Other)
  Sender: FDA-Public Use
  Company Number: 385360

PATIENT
  Age: 65 Year
  Sex: Female

DRUGS (3)
  1. NOVOLOG MIX 70/30 [Suspect]
     Indication: TYPE 2 DIABETES MELLITUS
     Route: 058
     Dates: end: 2013
  2. MULTIVITAMIN [Concomitant]
  3. DIURETICS [Concomitant]

REACTIONS (1)
  - Hypoglycaemic unconsciousness [None]
